FAERS Safety Report 8979485 (Version 1)
Quarter: 2012Q4

REPORT INFORMATION
  Report Type: 
  Country: MQ (occurrence: FR)
  Receive Date: 20121221
  Receipt Date: 20121221
  Transmission Date: 20130627
  Serious: Yes (Death, Hospitalization)
  Sender: FDA-Public Use
  Company Number: MQ-ASTRAZENECA-2012SE94591

PATIENT
  Sex: Male

DRUGS (1)
  1. CAPRELSA [Suspect]
     Indication: THYROID CANCER
     Route: 048
     Dates: start: 201204, end: 20121201

REACTIONS (2)
  - Death [Fatal]
  - Cardiac failure [Unknown]
